FAERS Safety Report 8149770-X (Version None)
Quarter: 2012Q1

REPORT INFORMATION
  Report Type: 
  Country: None (occurrence: None)
  Receive Date: 20120218
  Receipt Date: 20111205
  Transmission Date: 20120608
  Serious: No
  Sender: FDA-Public Use
  Company Number: US-ALLERGAN-1115874US

PATIENT
  Age: 37 Year
  Sex: Male

DRUGS (3)
  1. BOTULINUM TOXIN TYPE A [Suspect]
     Indication: SKIN WRINKLING
     Dosage: 33 UNITS, SINGLE
     Dates: start: 20110927, end: 20110927
  2. BOTULINUM TOXIN TYPE A [Suspect]
  3. BOTULINUM TOXIN TYPE A [Suspect]

REACTIONS (1)
  - THERAPEUTIC RESPONSE DECREASED [None]
